FAERS Safety Report 11144515 (Version 1)
Quarter: 2015Q2

REPORT INFORMATION
  Report Type: Report from Study
  Country: US (occurrence: US)
  Receive Date: 20150526
  Receipt Date: 20150526
  Transmission Date: 20150821
  Serious: No
  Sender: FDA-Public Use
  Company Number: US-AMGEN-USASL2015046992

PATIENT
  Age: 43 Year
  Sex: Male

DRUGS (1)
  1. ENBREL [Suspect]
     Active Substance: ETANERCEPT
     Indication: RHEUMATOID ARTHRITIS
     Dosage: 50 MG, QWK
     Route: 065
     Dates: start: 20140417

REACTIONS (5)
  - Sunburn [Unknown]
  - Hyperhidrosis [Unknown]
  - Intervertebral disc protrusion [Not Recovered/Not Resolved]
  - Rash pruritic [Unknown]
  - Rash [Unknown]

NARRATIVE: CASE EVENT DATE: 2014
